FAERS Safety Report 9345250 (Version 1)
Quarter: 2013Q2

REPORT INFORMATION
  Report Type: Spontaneous
  Country: BR (occurrence: BR)
  Receive Date: 20130612
  Receipt Date: 20130612
  Transmission Date: 20140414
  Serious: Yes (Other)
  Sender: FDA-Public Use
  Company Number: BR-ELI_LILLY_AND_COMPANY-BR201306001141

PATIENT
  Age: 59 Year
  Sex: Male

DRUGS (3)
  1. CIALIS [Suspect]
     Indication: ERECTILE DYSFUNCTION
     Dosage: 20 MG, OTHER
     Route: 048
     Dates: end: 2011
  2. CAPTOPRIL [Concomitant]
     Route: 065
  3. SINVASTATINA [Concomitant]
     Route: 065

REACTIONS (8)
  - Haemorrhage [Unknown]
  - Hypertension [Unknown]
  - Malaise [Unknown]
  - Flushing [Unknown]
  - Palpitations [Unknown]
  - Drug ineffective [Unknown]
  - Blood triglycerides increased [Unknown]
  - Blood cholesterol increased [Unknown]
